FAERS Safety Report 8314573-X (Version None)
Quarter: 2012Q2

REPORT INFORMATION
  Report Type: 
  Country: None (occurrence: None)
  Receive Date: 20120426
  Receipt Date: 20120424
  Transmission Date: 20120825
  Serious: Yes (Other)
  Sender: FDA-Public Use
  Company Number: AT-ROCHE-1062916

PATIENT
  Sex: Female
  Weight: 110 kg

DRUGS (9)
  1. CYMBALTA [Concomitant]
     Indication: DEPRESSION
     Route: 048
  2. PARKEMED [Concomitant]
     Dosage: ON DEMAND
     Route: 048
  3. VOLTAREN [Concomitant]
     Dosage: ON DEMAND
  4. OLEOVIT D3 [Concomitant]
     Indication: OSTEOPENIA
     Route: 048
  5. ASPIRIN [Concomitant]
     Indication: CORONARY ARTERY DISEASE
     Route: 048
  6. MEXALEN [Concomitant]
     Dosage: ON DEMAND
     Route: 048
  7. ARAVA [Concomitant]
     Indication: RHEUMATOID ARTHRITIS
     Route: 048
     Dates: start: 20110412
  8. LASIX [Concomitant]
     Indication: OEDEMA PERIPHERAL
     Route: 048
     Dates: start: 20120209
  9. TOCILIZUMAB [Suspect]
     Indication: RHEUMATOID ARTHRITIS
     Route: 042
     Dates: start: 20120214, end: 20120419

REACTIONS (2)
  - PRURITUS [None]
  - ERYTHEMA [None]
